FAERS Safety Report 6114715-0 (Version None)
Quarter: 2009Q1

REPORT INFORMATION
  Report Type: 
  Country: None (occurrence: None)
  Receive Date: 20090313
  Receipt Date: 20090305
  Transmission Date: 20090719
  Serious: Yes (Other)
  Sender: FDA-Public Use
  Company Number: PHHY2009GB03735

PATIENT
  Sex: Female

DRUGS (1)
  1. FEMARA [Suspect]
     Dosage: 2.5 MG, UNK
     Route: 048
     Dates: start: 20051101, end: 20081001

REACTIONS (3)
  - BONE SCAN ABNORMAL [None]
  - DISEASE RECURRENCE [None]
  - METASTASES TO BONE [None]
